FAERS Safety Report 7061449-4 (Version None)
Quarter: 2010Q4

REPORT INFORMATION
  Report Type: 
  Country: None (occurrence: None)
  Receive Date: 20101026
  Receipt Date: 20101013
  Transmission Date: 20110411
  Serious: Yes (Death, Other)
  Sender: FDA-Public Use
  Company Number: BR-ELI_LILLY_AND_COMPANY-BR201009001626

PATIENT
  Age: 59 Year
  Sex: Male

DRUGS (6)
  1. ZYPREXA [Suspect]
     Indication: PSYCHOTIC DISORDER
     Dosage: UNK, DAILY (1/D)
     Route: 065
     Dates: start: 20100722
  2. ZYPREXA [Suspect]
     Dosage: 10 MG, DAILY (1/D)
     Route: 065
     Dates: start: 20100805
  3. ESCITALOPRAM [Concomitant]
     Indication: MAJOR DEPRESSION
     Dosage: UNK, UNKNOWN
     Route: 065
  4. SYNTHROID [Concomitant]
     Indication: HYPOTHYROIDISM
     Dosage: 100 UG, DAILY (1/D)
     Route: 065
  5. EXODUS [Concomitant]
     Indication: DEPRESSION
     Dosage: 10 MG, DAILY (1/D)
     Route: 065
  6. NOCTAL [Concomitant]
     Indication: INSOMNIA
     Dosage: 2 MG, EACH EVENING
     Route: 065

REACTIONS (1)
  - COMPLETED SUICIDE [None]
